FAERS Safety Report 24242013 (Version 4)
Quarter: 2024Q4

REPORT INFORMATION
  Report Type: Report from Study
  Country: BR (occurrence: BR)
  Receive Date: 20240823
  Receipt Date: 20241113
  Transmission Date: 20250115
  Serious: Yes (Hospitalization, Other)
  Sender: NOVARTIS
  Company Number: BR-002147023-NVSC2024BR154354

PATIENT
  Age: 77 Year
  Sex: Female

DRUGS (7)
  1. RIBOCICLIB [Suspect]
     Active Substance: RIBOCICLIB
     Indication: Product used for unknown indication
     Dosage: 3 DOSAGE FORM, QD
     Route: 065
  2. RIBOCICLIB [Suspect]
     Active Substance: RIBOCICLIB
     Dosage: UNK
     Route: 065
     Dates: start: 20240927
  3. RIBOCICLIB [Suspect]
     Active Substance: RIBOCICLIB
     Dosage: UNK, CYCLIC
     Route: 065
     Dates: start: 20241025
  4. RIBOCICLIB [Suspect]
     Active Substance: RIBOCICLIB
     Dosage: UNK
     Route: 065
  5. ZOMETA [Suspect]
     Active Substance: ZOLEDRONIC ACID
     Indication: Bone cancer
     Dosage: UNK
     Route: 065
     Dates: start: 20240629
  6. ZOMETA [Suspect]
     Active Substance: ZOLEDRONIC ACID
     Dosage: UNK
     Route: 065
     Dates: start: 20240917
  7. ANASTROZOLE [Concomitant]
     Active Substance: ANASTROZOLE
     Indication: Product used for unknown indication
     Dosage: UNK
     Route: 065

REACTIONS (22)
  - Intestinal obstruction [Unknown]
  - Metastases to bone [Unknown]
  - Electrocardiogram QT prolonged [Unknown]
  - Blood electrolytes abnormal [Unknown]
  - Blood calcium decreased [Recovering/Resolving]
  - Haemoglobin decreased [Not Recovered/Not Resolved]
  - Red blood cell count decreased [Not Recovered/Not Resolved]
  - Blood thyroid stimulating hormone abnormal [Not Recovered/Not Resolved]
  - Tremor [Not Recovered/Not Resolved]
  - Memory impairment [Unknown]
  - Malaise [Unknown]
  - Platelet count decreased [Not Recovered/Not Resolved]
  - Haematocrit decreased [Not Recovered/Not Resolved]
  - Decreased appetite [Recovering/Resolving]
  - Adverse drug reaction [Unknown]
  - Nausea [Unknown]
  - Asthenia [Unknown]
  - Cough [Not Recovered/Not Resolved]
  - Ill-defined disorder [Unknown]
  - Retching [Not Recovered/Not Resolved]
  - Catarrh [Not Recovered/Not Resolved]
  - Inappropriate schedule of product administration [Unknown]

NARRATIVE: CASE EVENT DATE: 20240712
